FAERS Safety Report 7104832-0 (Version None)
Quarter: 2010Q4

REPORT INFORMATION
  Report Type: 
  Country: None (occurrence: None)
  Receive Date: 20101116
  Receipt Date: 20101105
  Transmission Date: 20110411
  Serious: Yes (Life-Threatening)
  Sender: FDA-Public Use
  Company Number: JP-JNJFOC-20101104395

PATIENT
  Sex: Female

DRUGS (10)
  1. LEVOFLOXACIN [Suspect]
     Indication: URINARY TRACT INFECTION
     Route: 048
  2. PREDNISOLONE [Concomitant]
     Indication: POLYMYALGIA RHEUMATICA
     Route: 048
  3. THYRADIN [Concomitant]
     Indication: HYPOTHYROIDISM
     Route: 048
  4. FUROSEMIDE [Concomitant]
     Indication: OEDEMA PERIPHERAL
     Route: 048
  5. BIOFERMIN [Concomitant]
     Route: 048
  6. FOSAMAC [Concomitant]
     Indication: OSTEOPOROSIS
     Dosage: 35 MG ONCE IN A WEEEK
     Route: 048
  7. TOUGHMAC E [Concomitant]
     Dosage: 35 MG ONCE IN A WEEEK
     Route: 048
  8. FAMOTIDINE [Concomitant]
     Dosage: 35 MG ONCE IN A WEEEK
     Route: 048
  9. HOKUNALIN [Concomitant]
     Indication: ASTHMA
     Dosage: 35 MG ONCE IN A WEEEK
     Route: 061
  10. KARY UNI [Concomitant]
     Indication: CATARACT
     Dosage: 35 MG ONCE IN A WEEEK
     Route: 047

REACTIONS (2)
  - HYPOGLYCAEMIA [None]
  - HYPOTENSION [None]
